FAERS Safety Report 7648560-1 (Version None)
Quarter: 2011Q3

REPORT INFORMATION
  Report Type: 
  Country: None (occurrence: None)
  Receive Date: 20110801
  Receipt Date: 20110721
  Transmission Date: 20111222
  Serious: Yes (Other)
  Sender: FDA-Public Use
  Company Number: PHHY2011DE66668

PATIENT
  Sex: Male

DRUGS (2)
  1. SANDOSTATIN [Suspect]
     Indication: DIARRHOEA
     Dosage: 300 UG, UNK
     Dates: end: 20110712
  2. SANDOSTATIN LAR [Suspect]
     Indication: DIARRHOEA
     Dosage: 10 MG, MONTHLY
     Route: 030
     Dates: start: 20110712

REACTIONS (3)
  - WEIGHT DECREASED [None]
  - ABNORMAL FAECES [None]
  - DIARRHOEA [None]
